FAERS Safety Report 15535655 (Version 2)
Quarter: 2019Q1

REPORT INFORMATION
  Report Type: Report from Study
  Country: US (occurrence: US)
  Receive Date: 20181022
  Receipt Date: 20190306
  Transmission Date: 20190417
  Serious: Yes (Other)
  Sender: FDA-Public Use
  Company Number: US-ROCHE-2179632

PATIENT
  Age: 53 Year
  Sex: Male

DRUGS (4)
  1. OCREVUS [Suspect]
     Active Substance: OCRELIZUMAB
     Indication: PRIMARY PROGRESSIVE MULTIPLE SCLEROSIS
     Dosage: ON 21/AUG/2017, HE RECEIVED THE SECOND OCRELIZUMAB INFUSION.
     Route: 065
     Dates: start: 20170807
  2. OCREVUS [Suspect]
     Active Substance: OCRELIZUMAB
     Dosage: SECOND OCRELIZUMAB INFUSION
     Route: 065
     Dates: start: 20170821
  3. OCREVUS [Suspect]
     Active Substance: OCRELIZUMAB
     Dosage: SECOND OCRELIZUMAB INFUSION
     Route: 065
     Dates: start: 20180205
  4. OCREVUS [Suspect]
     Active Substance: OCRELIZUMAB
     Dosage: 06/AUG/2018(THIRD CYCLE)
     Route: 065
     Dates: start: 20180806

REACTIONS (9)
  - Wheezing [Recovered/Resolved]
  - Unresponsive to stimuli [Recovered/Resolved]
  - Multiple sclerosis relapse [Not Recovered/Not Resolved]
  - Tongue pruritus [Unknown]
  - Heart rate decreased [Unknown]
  - Throat tightness [Recovered/Resolved]
  - Pruritus [Recovered/Resolved]
  - Throat irritation [Recovered/Resolved]
  - Pain [Not Recovered/Not Resolved]

NARRATIVE: CASE EVENT DATE: 20170807
